FAERS Safety Report 8387955-8 (Version None)
Quarter: 2012Q2

REPORT INFORMATION
  Report Type: 
  Country: None (occurrence: None)
  Receive Date: 20120525
  Receipt Date: 20120514
  Transmission Date: 20120825
  Serious: Yes (Disabling)
  Sender: FDA-Public Use
  Company Number: US-MERCK-1205USA02259

PATIENT
  Age: 50 Year
  Sex: Female
  Weight: 76 kg

DRUGS (14)
  1. ZOCOR [Suspect]
     Route: 048
  2. ZOCOR [Suspect]
     Route: 048
     Dates: start: 20110718
  3. FIBERCON [Concomitant]
     Route: 065
  4. ZOCOR [Suspect]
     Indication: BLOOD CHOLESTEROL INCREASED
     Route: 048
     Dates: end: 20111017
  5. DEXILANT [Concomitant]
     Indication: GASTROOESOPHAGEAL REFLUX DISEASE
     Route: 047
     Dates: start: 20110916
  6. ERGOCALCIFEROL [Concomitant]
     Route: 065
  7. CLIMARA [Concomitant]
     Indication: HORMONE REPLACEMENT THERAPY
     Dosage: PATCH
     Route: 061
     Dates: start: 19970101
  8. SYNTHROID [Concomitant]
     Indication: HYPOTHYROIDISM
     Route: 048
     Dates: start: 20040101
  9. ZYRTEC [Concomitant]
     Indication: HYPERSENSITIVITY
     Route: 047
     Dates: start: 20020101
  10. VITAMIN B COMPLEX [Concomitant]
     Route: 065
  11. ATENOLOL [Concomitant]
     Indication: LABILE HYPERTENSION
     Route: 048
     Dates: start: 20100101, end: 20111201
  12. BISOPROLOL [Concomitant]
     Indication: LABILE HYPERTENSION
     Route: 065
     Dates: start: 20111201
  13. NOW COQ10 [Concomitant]
     Route: 048
  14. ZOCOR [Suspect]
     Route: 048

REACTIONS (13)
  - LETHARGY [None]
  - BURNOUT SYNDROME [None]
  - WRONG TECHNIQUE IN DRUG USAGE PROCESS [None]
  - FEELING ABNORMAL [None]
  - DYSKINESIA [None]
  - COGNITIVE DISORDER [None]
  - DISTURBANCE IN ATTENTION [None]
  - FATIGUE [None]
  - PAIN IN EXTREMITY [None]
  - MENTAL IMPAIRMENT [None]
  - IMPAIRED WORK ABILITY [None]
  - SLEEP DISORDER [None]
  - MUSCLE SPASMS [None]
